FAERS Safety Report 6644182-X (Version None)
Quarter: 2010Q1

REPORT INFORMATION
  Report Type: 
  Country: None (occurrence: None)
  Receive Date: 20100322
  Receipt Date: 20100322
  Transmission Date: 20100710
  Serious: Yes (Hospitalization, Other)
  Sender: FDA-Public Use
  Company Number: PHHO2006DE15172

PATIENT
  Sex: Female
  Weight: 55.7 kg

DRUGS (3)
  1. ACLASTA/ZOLEDRONATE T29581+A+SOLINJ [Suspect]
     Indication: OSTEOPOROSIS POSTMENOPAUSAL
     Dosage: 5 MG ONCE A YEAR
     Route: 042
     Dates: start: 20060316
  2. CALCIUM SANDOZ [Concomitant]
     Indication: OSTEOPOROSIS POSTMENOPAUSAL
  3. VITAMIN D [Concomitant]
     Indication: OSTEOPOROSIS POSTMENOPAUSAL

REACTIONS (10)
  - BLINDNESS [None]
  - CONCOMITANT DISEASE PROGRESSION [None]
  - DIPLOPIA [None]
  - EYE DISORDER [None]
  - EYE OPERATION [None]
  - INTRAOCULAR LENS IMPLANT [None]
  - PHOTOPHOBIA [None]
  - PHOTOPSIA [None]
  - SCOTOMA [None]
  - VISION BLURRED [None]
